FAERS Safety Report 7349189-5 (Version None)
Quarter: 2011Q1

REPORT INFORMATION
  Report Type: 
  Country: None (occurrence: None)
  Receive Date: 20110314
  Receipt Date: 20110210
  Transmission Date: 20110831
  Serious: No
  Sender: FDA-Public Use
  Company Number: US-BAYER-2011-015069

PATIENT
  Sex: Female
  Weight: 72.562 kg

DRUGS (1)
  1. MAGNEVIST [Suspect]
     Indication: NUCLEAR MAGNETIC RESONANCE IMAGING BRAIN
     Dosage: 15 ML, ONCE
     Route: 042
     Dates: start: 20110209, end: 20110209

REACTIONS (5)
  - VOMITING [None]
  - PRURITUS [None]
  - URTICARIA [None]
  - NAUSEA [None]
  - LIP PRURITUS [None]
